FAERS Safety Report 6309184-1 (Version None)
Quarter: 2009Q3

REPORT INFORMATION
  Report Type: 
  Country: None (occurrence: None)
  Receive Date: 20090814
  Receipt Date: 20090731
  Transmission Date: 20100115
  Serious: No
  Sender: FDA-Public Use
  Company Number: A0794384A

PATIENT
  Age: 66 Year
  Sex: Male
  Weight: 96.8 kg

DRUGS (6)
  1. COREG CR [Suspect]
     Route: 048
     Dates: start: 20090618
  2. GLIPIZIDE [Concomitant]
     Dosage: 5MGD PER DAY
     Route: 048
     Dates: start: 20040301
  3. METFORMIN HCL [Concomitant]
     Dosage: 1000MG PER DAY
     Route: 048
     Dates: start: 20030301
  4. BYETTA [Concomitant]
     Dosage: 5MCG TWICE PER DAY
     Route: 058
     Dates: start: 20070301
  5. LISINOPRIL AND HYDROCHLOROTHIAZIDE [Concomitant]
     Route: 048
     Dates: start: 20080301
  6. ACTOS [Concomitant]
     Dosage: 45MG PER DAY
     Route: 048
     Dates: start: 20070101

REACTIONS (2)
  - VISION BLURRED [None]
  - VISUAL IMPAIRMENT [None]
